FAERS Safety Report 20246689 (Version 1)
Quarter: 2021Q4

REPORT INFORMATION
  Report Type: Spontaneous
  Country: CA (occurrence: CA)
  Receive Date: 20211229
  Receipt Date: 20211229
  Transmission Date: 20220303
  Serious: Yes (Death, Other)
  Sender: FDA-Public Use
  Company Number: CA-TEVA-2021-CA-1994028

PATIENT
  Age: 67 Year
  Sex: Male

DRUGS (1)
  1. PROPOFOL [Suspect]
     Active Substance: PROPOFOL
     Indication: Euthanasia
     Route: 042
     Dates: start: 20180905

REACTIONS (3)
  - Extra dose administered [Fatal]
  - Off label use [Fatal]
  - Drug ineffective [Unknown]
